FAERS Safety Report 15230723 (Version 1)
Quarter: 2018Q3

REPORT INFORMATION
  Report Type: Spontaneous
  Country: US (occurrence: US)
  Receive Date: 20180802
  Receipt Date: 20180802
  Transmission Date: 20181010
  Serious: No
  Sender: FDA-Public Use
  Company Number: US-SA-2018SA208372

PATIENT
  Age: 40 Year
  Sex: Male

DRUGS (2)
  1. SOLIQUA 100/33 [Suspect]
     Active Substance: INSULIN GLARGINE\LIXISENATIDE
     Dosage: 15 UNK, QD
     Route: 065
     Dates: start: 20180706, end: 20180726
  2. SYNJARDY [Suspect]
     Active Substance: EMPAGLIFLOZIN\METFORMIN HYDROCHLORIDE
     Dosage: 15 UNK, QD
     Route: 065
     Dates: start: 20180706, end: 20180726

REACTIONS (1)
  - Gout [Not Recovered/Not Resolved]
